FAERS Safety Report 8890540 (Version 2)
Quarter: 2012Q4

REPORT INFORMATION
  Report Type: 
  Country: DE (occurrence: DE)
  Receive Date: 20121107
  Receipt Date: 20121109
  Transmission Date: 20130627
  Serious: Yes (Other)
  Sender: FDA-Public Use
  Company Number: DE-ASTELLAS-2012EU009695

PATIENT
  Sex: Female

DRUGS (1)
  1. TACROLIMUS SYSTEMIC [Suspect]
     Dosage: UNK
     Route: 065

REACTIONS (2)
  - Optic nerve disorder [Unknown]
  - Visual acuity reduced [Unknown]
